FAERS Safety Report 7998707-2 (Version None)
Quarter: 2011Q4

REPORT INFORMATION
  Report Type: 
  Country: None (occurrence: None)
  Receive Date: 20111221
  Receipt Date: 20111213
  Transmission Date: 20120403
  Serious: Yes (Other)
  Sender: FDA-Public Use
  Company Number: US-PFIZER INC-2011303865

PATIENT
  Sex: Female
  Weight: 74.83 kg

DRUGS (8)
  1. BENADRYL [Suspect]
     Indication: PHARYNGEAL OEDEMA
  2. EPIPEN [Concomitant]
     Indication: HYPERSENSITIVITY
     Dosage: UNK
  3. BENADRYL [Suspect]
     Indication: OEDEMA MOUTH
     Dosage: UNK
     Dates: start: 20111212
  4. BENADRYL [Suspect]
     Indication: LIP SWELLING
  5. BENADRYL [Suspect]
     Indication: SWOLLEN TONGUE
  6. LEVOTHYROXINE [Concomitant]
     Indication: HYPOTHYROIDISM
     Dosage: 100 UG,DAILY
  7. ATORVASTATIN CALCIUM [Suspect]
     Indication: BLOOD CHOLESTEROL INCREASED
     Dosage: 20 MG, DAILY
     Dates: start: 20111212, end: 20111212
  8. HYDROCHLOROTHIAZIDE [Concomitant]
     Indication: HYPERTENSION
     Dosage: 25 MG, DAILY

REACTIONS (6)
  - DRUG INEFFECTIVE [None]
  - PARAESTHESIA ORAL [None]
  - OEDEMA MOUTH [None]
  - LIP SWELLING [None]
  - SWOLLEN TONGUE [None]
  - PHARYNGEAL OEDEMA [None]
